FAERS Safety Report 9932022 (Version 1)
Quarter: 2014Q1

REPORT INFORMATION
  Report Type: Spontaneous
  Country: US (occurrence: US)
  Receive Date: 20140228
  Receipt Date: 20140228
  Transmission Date: 20141002
  Serious: No
  Sender: FDA-Public Use
  Company Number: US-ABBVIE-13P-163-1138527-00

PATIENT
  Sex: Male
  Weight: 79.45 kg

DRUGS (4)
  1. ANDROGEL [Suspect]
     Indication: BLOOD TESTOSTERONE DECREASED
     Dosage: 5 GM
     Route: 061
     Dates: start: 2004
  2. ANDROGEL [Suspect]
     Dosage: 7.5 GM
  3. PREDNISONE [Concomitant]
     Indication: DERMATITIS ATOPIC
  4. NEBIVOLOL [Concomitant]
     Indication: HYPERTENSION

REACTIONS (4)
  - Depressed level of consciousness [Not Recovered/Not Resolved]
  - Blood testosterone decreased [Unknown]
  - Blood testosterone free decreased [Unknown]
  - Asthenia [Not Recovered/Not Resolved]
